FAERS Safety Report 9018325 (Version 1)
Quarter: 2013Q1

REPORT INFORMATION
  Report Type: Spontaneous
  Country: US (occurrence: None)
  Receive Date: 20130111
  Receipt Date: 20130111
  Transmission Date: 20140127
  Serious: Yes (Hospitalization)
  Sender: FDA-Public Use
  Company Number: None

PATIENT
  Age: 69 Year
  Sex: Female
  Weight: 82.1 kg

DRUGS (11)
  1. GLIMEPIRIDE [Suspect]
     Indication: DIABETES MELLITUS
     Dosage: 2MG DAILY PO
     Route: 048
  2. METFORMIN [Suspect]
     Indication: DIABETES MELLITUS
     Dosage: 2000MG DAILY PO
     Route: 048
  3. COUMADIN [Suspect]
     Indication: DIABETES MELLITUS
     Dosage: 2MG DAILY PO
  4. LEVAQUIN [Suspect]
     Indication: DIABETES MELLITUS
     Dosage: 2000MG DAILY PO
  5. MAVIK [Concomitant]
  6. VIT C [Concomitant]
  7. SIMVASTATIN [Concomitant]
  8. AMLODIPINE [Concomitant]
  9. LASIX [Concomitant]
  10. METOPROLOL [Concomitant]
  11. COUMADIN [Concomitant]

REACTIONS (5)
  - Hypoglycaemia [None]
  - Bronchitis [None]
  - Drug interaction [None]
  - Prothrombin time prolonged [None]
  - International normalised ratio increased [None]
